FAERS Safety Report 8770411 (Version 1)
Quarter: 2012Q4

REPORT INFORMATION
  Report Type: 
  Country: US (occurrence: US)
  Receive Date: 20120904
  Receipt Date: 20120904
  Transmission Date: 20130627
  Serious: Yes (Other)
  Sender: FDA-Public Use
  Company Number: US-ELI_LILLY_AND_COMPANY-US200910007334

PATIENT
  Age: 13 Year
  Sex: Male

DRUGS (11)
  1. ZYPREXA [Suspect]
     Indication: BIPOLAR DISORDER
     Dosage: 7.5 mg, each evening
     Dates: start: 20020412
  2. ZYPREXA [Suspect]
     Dosage: 10 mg, tid
  3. ZYPREXA [Suspect]
     Dosage: 10 mg, bid
     Route: 048
     Dates: end: 20020716
  4. PROZAC [Concomitant]
     Dosage: 1 DF, UNK
  5. HALDOL [Concomitant]
  6. CARBAMAZEPINE [Concomitant]
  7. ATIVAN [Concomitant]
  8. RITALIN [Concomitant]
  9. CLONIDINE [Concomitant]
  10. CHLORPROMAZINE [Concomitant]
  11. TRILEPTAL [Concomitant]

REACTIONS (11)
  - Petit mal epilepsy [Unknown]
  - Weight increased [Unknown]
  - Type 2 diabetes mellitus [Unknown]
  - Red blood cell count increased [Unknown]
  - Sleep apnoea syndrome [Unknown]
  - Paranasal sinus discomfort [Unknown]
  - Hypertension [Unknown]
  - Blood cholesterol increased [Unknown]
  - Blood triglycerides increased [Unknown]
  - Alanine aminotransferase increased [Unknown]
  - Prescribed overdose [Unknown]
